FAERS Safety Report 7385736-5 (Version None)
Quarter: 2011Q1

REPORT INFORMATION
  Report Type: 
  Country: None (occurrence: None)
  Receive Date: 20110331
  Receipt Date: 20100908
  Transmission Date: 20110831
  Serious: Yes (Hospitalization, Other)
  Sender: FDA-Public Use
  Company Number: US-BAYER-201028860NA

PATIENT
  Sex: Female
  Weight: 108.8 kg

DRUGS (14)
  1. ALBUTEROL [Concomitant]
     Indication: ASTHMA
  2. YASMIN [Suspect]
     Indication: ENDOMETRIOSIS
     Dosage: UNK
     Route: 048
     Dates: start: 20090701
  3. YASMIN [Suspect]
     Indication: DYSMENORRHOEA
  4. OCELLA [Suspect]
     Indication: PRODUCT USED FOR UNKNOWN INDICATION
     Route: 048
     Dates: start: 20081001, end: 20090901
  5. PREDNISONE [Concomitant]
     Indication: ASTHMA
     Dosage: UNK
     Dates: start: 20090701
  6. DIFLUCAN [Concomitant]
     Indication: URINARY TRACT INFECTION
  7. UNCODEABLE ^UNCLASSIFIABLE^ [Concomitant]
     Indication: GENITAL HERPES
     Dosage: UNK
     Dates: start: 19950101
  8. TYLENOL (CAPLET) [Concomitant]
  9. CEFTRIAXONE [Concomitant]
     Indication: URINARY TRACT INFECTION
  10. UNCODEABLE ^UNCLASSIFIABLE^ [Concomitant]
     Indication: ENDOMETRIOSIS
     Dosage: UNK
     Dates: start: 19900101, end: 20000101
  11. LEVAQUIN [Concomitant]
     Indication: URINARY TRACT INFECTION
  12. OXYCODONE HCL AND ACETAMINOPHEN [Concomitant]
  13. SULFAMETHOXAZOLE AND TRIMETHOPRIM [Concomitant]
  14. YAZ [Suspect]
     Indication: ENDOMETRIOSIS
     Dosage: UNK
     Route: 048
     Dates: start: 20071201, end: 20090706

REACTIONS (3)
  - DYSPNOEA [None]
  - PULMONARY EMBOLISM [None]
  - MOBILITY DECREASED [None]
